FAERS Safety Report 16776504 (Version 1)
Quarter: 2019Q3

REPORT INFORMATION
  Report Type: Report from Study
  Country: CA (occurrence: CA)
  Receive Date: 20190905
  Receipt Date: 20190905
  Transmission Date: 20191005
  Serious: Yes (Hospitalization, Other)
  Sender: FDA-Public Use
  Company Number: CA-JNJFOC-20180837029

PATIENT
  Age: 26 Year
  Sex: Female
  Weight: 74.4 kg

DRUGS (4)
  1. FENTANYL. [Concomitant]
     Active Substance: FENTANYL
     Route: 042
     Dates: start: 20181117
  2. OXYTOCIN. [Concomitant]
     Active Substance: OXYTOCIN
     Route: 042
     Dates: start: 20181117
  3. REMICADE [Suspect]
     Active Substance: INFLIXIMAB
     Indication: COLITIS ULCERATIVE
     Dosage: STRENGTH = 100 MG
     Route: 042
     Dates: start: 2014
  4. NITROUS OXIDE. [Concomitant]
     Active Substance: NITROUS OXIDE
     Route: 065
     Dates: start: 20181117

REACTIONS (3)
  - Colitis ulcerative [Not Recovered/Not Resolved]
  - Premature delivery [Unknown]
  - Exposure during pregnancy [Recovered/Resolved]

NARRATIVE: CASE EVENT DATE: 201803
